FAERS Safety Report 20784782 (Version 1)
Quarter: 2022Q2

REPORT INFORMATION
  Report Type: Spontaneous
  Country: US (occurrence: US)
  Receive Date: 20220504
  Receipt Date: 20220504
  Transmission Date: 20220721
  Serious: No
  Sender: FDA-Public Use
  Company Number: US-PFIZER INC-202101472401

PATIENT
  Age: 37 Year
  Sex: Male

DRUGS (2)
  1. ERYTHROMYCIN [Suspect]
     Active Substance: ERYTHROMYCIN
     Indication: Eye swelling
     Dosage: UNK
     Dates: start: 20211008, end: 20211010
  2. ERYTHROMYCIN [Suspect]
     Active Substance: ERYTHROMYCIN
     Indication: Eye irritation

REACTIONS (1)
  - Drug ineffective [Unknown]
